FAERS Safety Report 19254802 (Version 2)
Quarter: 2023Q2

REPORT INFORMATION
  Report Type: Spontaneous
  Country: US (occurrence: US)
  Receive Date: 20210513
  Receipt Date: 20230530
  Transmission Date: 20230721
  Serious: No
  Sender: FDA-Public Use
  Company Number: US-UCBSA-2021000373

PATIENT

DRUGS (2)
  1. CIMZIA [Suspect]
     Active Substance: CERTOLIZUMAB PEGOL
     Indication: Product used for unknown indication
  2. CIMZIA [Suspect]
     Active Substance: CERTOLIZUMAB PEGOL

REACTIONS (5)
  - Nasopharyngitis [Unknown]
  - Therapy interrupted [Unknown]
  - Product availability issue [Unknown]
  - Insurance issue [Unknown]
  - SARS-CoV-2 test negative [Unknown]
